FAERS Safety Report 5829565-X (Version None)
Quarter: 2008Q3

REPORT INFORMATION
  Report Type: 
  Country: None (occurrence: None)
  Receive Date: 20080729
  Receipt Date: 20080715
  Transmission Date: 20090109
  Serious: Yes (Hospitalization, Other)
  Sender: FDA-Public Use
  Company Number: US022004

PATIENT
  Sex: Female
  Weight: 54.4316 kg

DRUGS (3)
  1. ACTIQ [Suspect]
     Indication: PANCREATITIS CHRONIC
     Dosage: 200 MCG/400MCG 4-6 DOSES/DAY BUCCAL
     Route: 002
     Dates: start: 20050101
  2. ACTIQ [Suspect]
     Indication: SPINAL CORD INJURY
     Dosage: 200 MCG/400MCG 4-6 DOSES/DAY BUCCAL
     Route: 002
     Dates: start: 20050101
  3. FENTANYL TRANSDERMAL SYSTEM [Concomitant]

REACTIONS (3)
  - DRUG INEFFECTIVE [None]
  - GASTROINTESTINAL PAIN [None]
  - PAIN [None]
